FAERS Safety Report 4925900-5 (Version None)
Quarter: 2006Q1

REPORT INFORMATION
  Report Type: 
  Country: None (occurrence: None)
  Receive Date: 20060228
  Receipt Date: 20050412
  Transmission Date: 20060701
  Serious: Yes (Other)
  Sender: FDA-Public Use
  Company Number: US-GLAXOSMITHKLINE-A0553781A

PATIENT
  Age: 45 Year
  Sex: Male
  Weight: 90.9 kg

DRUGS (5)
  1. LAMICTAL [Suspect]
     Dosage: 300MG PER DAY
     Route: 048
  2. PROVIGIL [Concomitant]
     Dosage: 200MG PER DAY
  3. ADDERALL 10 [Concomitant]
     Dosage: 20MG PER DAY
  4. ZYPREXA [Concomitant]
     Dosage: 20MG PER DAY
  5. PAXIL [Concomitant]
     Dosage: 60MG PER DAY

REACTIONS (6)
  - DEPRESSION [None]
  - DRUG INEFFECTIVE [None]
  - HYPERSOMNIA [None]
  - MANIA [None]
  - PHARMACEUTICAL PRODUCT COMPLAINT [None]
  - SOMNOLENCE [None]
